FAERS Safety Report 9728349 (Version 2)
Quarter: 2013Q4

REPORT INFORMATION
  Report Type: Report from Study
  Country: CN (occurrence: CN)
  Receive Date: 20131204
  Receipt Date: 20131210
  Transmission Date: 20140711
  Serious: Yes (Death, Other)
  Sender: FDA-Public Use
  Company Number: PHHY2013CN141115

PATIENT
  Sex: Female

DRUGS (1)
  1. GLIVEC [Suspect]
     Indication: ACUTE LYMPHOCYTIC LEUKAEMIA
     Dosage: 400 MG, QD
     Route: 048
     Dates: start: 20111124

REACTIONS (4)
  - Death [Fatal]
  - Acute lymphocytic leukaemia [Unknown]
  - Malignant neoplasm progression [Unknown]
  - Drug ineffective [Unknown]
